FAERS Safety Report 5949538-6 (Version None)
Quarter: 2008Q4

REPORT INFORMATION
  Report Type: 
  Country: None (occurrence: None)
  Receive Date: 20081112
  Receipt Date: 20081107
  Transmission Date: 20090506
  Serious: Yes (Death, Other)
  Sender: FDA-Public Use
  Company Number: PHEH2008US10081

PATIENT
  Sex: Female

DRUGS (2)
  1. FEMARA [Suspect]
     Dosage: 2.5 MG, QD
     Route: 048
     Dates: start: 20070801
  2. ANTINEOPLASTIC AGENTS [Concomitant]
     Dosage: UNK
     Dates: end: 20080501

REACTIONS (3)
  - ARM AMPUTATION [None]
  - HEPATIC NEOPLASM MALIGNANT [None]
  - INFECTION [None]
